FAERS Safety Report 4934285-X (Version None)
Quarter: 2006Q1

REPORT INFORMATION
  Report Type: 
  Country: None (occurrence: None)
  Receive Date: 20060307
  Receipt Date: 20060223
  Transmission Date: 20060701
  Serious: Yes (Hospitalization)
  Sender: FDA-Public Use
  Company Number: JP-ROCHE-437576

PATIENT
  Age: 77 Year
  Sex: Male

DRUGS (7)
  1. PANALDINE [Suspect]
     Indication: PROPHYLAXIS
     Route: 048
     Dates: start: 20051231, end: 20060127
  2. ISOSORBIDE MONONITRATE [Concomitant]
     Route: 048
  3. RYTHMODAN [Concomitant]
     Route: 048
  4. BUFFERIN [Concomitant]
     Route: 048
  5. EPADEL [Concomitant]
     Route: 048
  6. ALDACTONE [Concomitant]
     Route: 048
  7. ACARDI [Concomitant]
     Route: 048

REACTIONS (3)
  - HEPATIC NECROSIS [None]
  - HEPATITIS FULMINANT [None]
  - MALAISE [None]
